FAERS Safety Report 5631341-8 (Version None)
Quarter: 2008Q1

REPORT INFORMATION
  Report Type: 
  Country: None (occurrence: None)
  Receive Date: 20080213
  Receipt Date: 20080204
  Transmission Date: 20080703
  Serious: Yes (Death)
  Sender: FDA-Public Use
  Company Number: 2008-01033

PATIENT
  Age: 23 Year
  Sex: Male

DRUGS (1)
  1. LOXAPINE [Suspect]

REACTIONS (1)
  - DEATH [None]
